FAERS Safety Report 6077304-2 (Version None)
Quarter: 2009Q1

REPORT INFORMATION
  Report Type: 
  Country: None (occurrence: None)
  Receive Date: 20090213
  Receipt Date: 20090204
  Transmission Date: 20090719
  Serious: Yes (Hospitalization)
  Sender: FDA-Public Use
  Company Number: B0461135A

PATIENT
  Age: 67 Year
  Sex: Male

DRUGS (5)
  1. AVANDAMET [Suspect]
     Route: 048
     Dates: start: 20061101, end: 20061101
  2. LOGIMAX [Suspect]
     Indication: HYPERTENSION
     Route: 048
     Dates: start: 20060901, end: 20060901
  3. NISISCO [Suspect]
     Indication: HYPERTENSION
     Route: 048
     Dates: start: 20061001, end: 20061001
  4. DIAMICRON [Concomitant]
     Route: 048
     Dates: start: 20061101
  5. TRIATEC [Concomitant]
     Route: 048

REACTIONS (10)
  - DYSPNOEA EXERTIONAL [None]
  - EYELID OEDEMA [None]
  - GENERALISED OEDEMA [None]
  - GLOMERULONEPHRITIS MEMBRANOUS [None]
  - HYPERTENSION [None]
  - NEPHROTIC SYNDROME [None]
  - OEDEMA GENITAL [None]
  - OEDEMA PERIPHERAL [None]
  - RENAL FAILURE [None]
  - WEIGHT INCREASED [None]
